FAERS Safety Report 24139224 (Version 2)
Quarter: 2024Q3

REPORT INFORMATION
  Report Type: Report from Study
  Country: CN (occurrence: CN)
  Receive Date: 20240726
  Receipt Date: 20240809
  Transmission Date: 20241016
  Serious: Yes (Death, Other)
  Sender: TEVA
  Company Number: CN-TEVA-VS-3222791

PATIENT

DRUGS (7)
  1. BENDAMUSTINE [Suspect]
     Active Substance: BENDAMUSTINE
     Indication: Mantle cell lymphoma
     Dosage: ON DAY 1 TO DAY 2 FOR EVERY 28 DAYS; FOR A TOTAL OF 6 CYCLES; INDUCTION THERAPY
     Route: 042
  2. CYTARABINE [Suspect]
     Active Substance: CYTARABINE
     Indication: Mantle cell lymphoma
     Dosage: ON DAY 1 TO DAY 3 FOR EVERY 28 DAYS; FOR A TOTAL OF 6 CYCLES; INDUCTION THERAPY
     Route: 042
  3. RITUXIMAB [Suspect]
     Active Substance: RITUXIMAB
     Indication: Mantle cell lymphoma
     Dosage: ON DAY 0 FOR EVERY 28 DAYS; FOR A TOTAL OF 6 CYCLES; INDUCTION THERAPY
     Route: 042
  4. RITUXIMAB [Suspect]
     Active Substance: RITUXIMAB
     Indication: Mantle cell lymphoma
     Dosage: ON DAY 0 FOR TWO TIMES; MAINTENANCE THERAPY
     Route: 042
  5. IBRUTINIB [Suspect]
     Active Substance: IBRUTINIB
     Indication: Mantle cell lymphoma
     Dosage: EVERYDAY FOR A YEAR; AS A MAINTENANCE THERAPY
     Route: 048
  6. IBRUTINIB [Suspect]
     Active Substance: IBRUTINIB
     Indication: Mantle cell lymphoma
     Dosage: PER DAY EVERY DAY FOR EVERY 28 DAYS; FOR A TOTAL OF 6 CYCLES; INDUCTION THERAPY
     Route: 048
  7. PREDNISONE [Suspect]
     Active Substance: PREDNISONE
     Indication: Mantle cell lymphoma
     Dosage: ON DAY 1 TO DAY 5 FOR EVERY 28 DAYS; FOR A TOTAL OF 6 CYCLES; INDUCTION THERAPY
     Route: 048

REACTIONS (1)
  - COVID-19 [Fatal]
